FAERS Safety Report 16753103 (Version 6)
Quarter: 2019Q4

REPORT INFORMATION
  Report Type: Report from Study
  Country: JP (occurrence: JP)
  Receive Date: 20190829
  Receipt Date: 20191121
  Transmission Date: 20200122
  Serious: Yes (Hospitalization)
  Sender: FDA-Public Use
  Company Number: JP-PFIZER INC-2019347826

PATIENT
  Age: 68 Year
  Sex: Male
  Weight: 103 kg

DRUGS (10)
  1. SELARA [Suspect]
     Active Substance: EPLERENONE
     Dosage: 25 MG, DAILY
     Dates: start: 20180530, end: 20181227
  2. LANIRAPID [Suspect]
     Active Substance: METILDIGOXIN
     Indication: TACHYCARDIA
     Dosage: 1 TABLET
     Route: 048
     Dates: start: 20180720, end: 20181227
  3. OLMESARTAN [Concomitant]
     Active Substance: OLMESARTAN
     Indication: HYPERTENSION
     Dosage: UNK
     Route: 048
     Dates: start: 20171212, end: 20181227
  4. LIXIANA [Concomitant]
     Active Substance: EDOXABAN TOSYLATE
     Indication: ATRIAL FIBRILLATION
     Dosage: UNK
     Route: 048
     Dates: start: 20171212, end: 20181227
  5. BISOPROLOL FUMARATE. [Suspect]
     Active Substance: BISOPROLOL FUMARATE
     Indication: TACHYCARDIA
     Dosage: UNK
     Route: 048
     Dates: start: 20160930, end: 20181227
  6. VASOLAN [VERAPAMIL HYDROCHLORIDE] [Suspect]
     Active Substance: VERAPAMIL HYDROCHLORIDE
     Indication: TACHYCARDIA
     Dosage: 2 TABLETS
     Route: 048
     Dates: start: 20181029, end: 20181227
  7. DIART [Concomitant]
     Active Substance: AZOSEMIDE
     Indication: CARDIAC FAILURE
     Dosage: 1 UNK, UNK
     Route: 048
     Dates: start: 20180126, end: 20181227
  8. SELARA [Suspect]
     Active Substance: EPLERENONE
     Indication: CARDIAC FAILURE CHRONIC
     Dosage: 25 MG, ALTERNATE DAY
     Dates: start: 20180427, end: 20180529
  9. ANCARON [Suspect]
     Active Substance: AMIODARONE HYDROCHLORIDE
     Indication: VENTRICULAR TACHYCARDIA
     Dosage: 1 TABLET
     Route: 048
     Dates: start: 20171212, end: 20181227
  10. RABEPRAZOLE NA [Concomitant]
     Active Substance: RABEPRAZOLE SODIUM
     Indication: PROPHYLAXIS AGAINST GASTROINTESTINAL ULCER
     Dosage: UNK
     Route: 048
     Dates: start: 20171212, end: 20181227

REACTIONS (2)
  - Bradycardia [Recovered/Resolved]
  - Hypotension [Recovered/Resolved]

NARRATIVE: CASE EVENT DATE: 20181227
